FAERS Safety Report 9375493 (Version 2)
Quarter: 2013Q3

REPORT INFORMATION
  Report Type: Spontaneous
  Country: US (occurrence: US)
  Receive Date: 20130628
  Receipt Date: 20130709
  Transmission Date: 20140515
  Serious: Yes (Death, Hospitalization)
  Sender: FDA-Public Use
  Company Number: US-ACTELION-A-US2013-84826

PATIENT
  Age: 49 Year
  Sex: Female

DRUGS (3)
  1. TRACLEER [Suspect]
     Indication: PULMONARY ARTERIAL HYPERTENSION
     Dosage: UNK
     Route: 048
     Dates: end: 20130615
  2. COUMADIN [Concomitant]
  3. REMODULIN [Concomitant]

REACTIONS (5)
  - Cardiac failure [Fatal]
  - Fluid overload [Fatal]
  - Pulseless electrical activity [Fatal]
  - Gastrointestinal haemorrhage [Unknown]
  - Lesion excision [Unknown]
